FAERS Safety Report 7995886-8 (Version None)
Quarter: 2011Q4

REPORT INFORMATION
  Report Type: 
  Country: None (occurrence: None)
  Receive Date: 20111220
  Receipt Date: 20111207
  Transmission Date: 20120403
  Serious: Yes (Hospitalization)
  Sender: FDA-Public Use
  Company Number: US-ELI_LILLY_AND_COMPANY-US201105007847

PATIENT
  Sex: Female

DRUGS (24)
  1. VITAMIN D [Concomitant]
     Dosage: 1000 IU, QD
  2. POTASSIUM [Concomitant]
     Dosage: UNK, PRN
  3. ANTISEPTICS [Concomitant]
  4. FENTANYL [Concomitant]
     Dosage: 25 UG, OTHER
     Route: 062
  5. RAMIPRIL [Concomitant]
     Dosage: 2.5 MG, QD
  6. COMBIVENT [Concomitant]
     Dosage: UNK, BID
  7. ADVAIR DISKUS 100/50 [Concomitant]
     Dosage: UNK, BID
  8. GABAPENTIN [Concomitant]
     Dosage: 300 MG, QD
  9. LASIX [Concomitant]
     Dosage: 40 MG, UNK
  10. HYDROXYCHLOROQUINE SULFATE [Concomitant]
     Dosage: 200 MG, BID
  11. VENTOLIN                                /SCH/ [Concomitant]
     Dosage: UNK, QD
  12. FORTEO [Suspect]
     Indication: OSTEOPOROSIS
     Dosage: 20 UG, QD
     Route: 065
     Dates: start: 20110523
  13. FORTEO [Suspect]
     Dosage: 20 UG, QD
     Route: 065
  14. FORTEO [Suspect]
     Dosage: 20 UG, QD
     Route: 065
  15. OMEPRAZOLE [Concomitant]
     Dosage: 20 MG, BID
  16. FOLIC ACID [Concomitant]
     Dosage: 1 MG, OTHER
  17. CALCIUM +VIT D [Concomitant]
     Dosage: UNK, QD
  18. ALBUTEROL [Concomitant]
  19. AMLODIPINE [Concomitant]
     Dosage: 5 MG, QD
  20. MULTI-VITAMIN [Concomitant]
  21. FORTEO [Suspect]
     Dosage: 20 UG, QD
     Route: 065
  22. FORTEO [Suspect]
     Dosage: 20 UG, QD
     Route: 065
  23. LEVOTHYROXINE SODIUM [Concomitant]
     Dosage: 0.5 DF, QD
  24. LIOTHYRONINE SODIUM [Concomitant]

REACTIONS (23)
  - FEELING ABNORMAL [None]
  - ARTHROPATHY [None]
  - PAIN IN EXTREMITY [None]
  - DRUG DOSE OMISSION [None]
  - ABDOMINAL DISCOMFORT [None]
  - VOMITING [None]
  - FEAR [None]
  - NODULE [None]
  - PRURITUS [None]
  - MALAISE [None]
  - CORRECTIVE LENS USER [None]
  - MUSCULAR WEAKNESS [None]
  - DRUG INTERACTION [None]
  - JOINT SWELLING [None]
  - PANIC REACTION [None]
  - POOR QUALITY DRUG ADMINISTERED [None]
  - PAIN [None]
  - CYSTOCELE [None]
  - BLADDER PROLAPSE [None]
  - TREMOR [None]
  - JOINT EFFUSION [None]
  - NAUSEA [None]
  - ARTHRALGIA [None]
